FAERS Safety Report 17590279 (Version 1)
Quarter: 2020Q1

REPORT INFORMATION
  Report Type: Spontaneous
  Country: CN (occurrence: CN)
  Receive Date: 20200327
  Receipt Date: 20200327
  Transmission Date: 20200409
  Serious: Yes (Other)
  Sender: FDA-Public Use
  Company Number: CN-ROCHE-2573979

PATIENT
  Age: 75 Year
  Sex: Female

DRUGS (1)
  1. ACTILYSE [Suspect]
     Active Substance: ALTEPLASE
     Indication: CEREBROVASCULAR ACCIDENT
     Dosage: 1 EVERY 1 ONCE
     Route: 065
     Dates: start: 20200310

REACTIONS (1)
  - Stroke in evolution [Unknown]

NARRATIVE: CASE EVENT DATE: 20200313
